FAERS Safety Report 8216692-5 (Version None)
Quarter: 2012Q1

REPORT INFORMATION
  Report Type: 
  Country: None (occurrence: None)
  Receive Date: 20120316
  Receipt Date: 20120113
  Transmission Date: 20120608
  Serious: No
  Sender: FDA-Public Use
  Company Number: US-ASTRAZENECA-2012SE02977

PATIENT
  Sex: Female

DRUGS (1)
  1. TOPROL-XL [Suspect]
     Indication: HYPERTENSION
     Route: 048
     Dates: end: 20110801

REACTIONS (16)
  - PERIPHERAL COLDNESS [None]
  - HEADACHE [None]
  - HEART RATE INCREASED [None]
  - BRONCHOSPASM [None]
  - BLOOD PRESSURE INCREASED [None]
  - HYPOTENSION [None]
  - ANXIETY [None]
  - DYSPNOEA [None]
  - TEMPERATURE INTOLERANCE [None]
  - CHOKING [None]
  - OROPHARYNGEAL PAIN [None]
  - NASAL CONGESTION [None]
  - TONSILLAR HYPERTROPHY [None]
  - NERVOUSNESS [None]
  - DIZZINESS [None]
  - ABDOMINAL DISCOMFORT [None]
